FAERS Safety Report 6662509-X (Version None)
Quarter: 2010Q1

REPORT INFORMATION
  Report Type: 
  Country: None (occurrence: None)
  Receive Date: 20100329
  Receipt Date: 20100312
  Transmission Date: 20100710
  Serious: Yes (Other)
  Sender: FDA-Public Use
  Company Number: CN-JNJFOC-20100303847

PATIENT

DRUGS (1)
  1. DACOGEN [Suspect]
     Indication: MYELODYSPLASTIC SYNDROME
     Dosage: 25 MG/M2, INTRAVENOUS
     Route: 042
     Dates: start: 20100124, end: 20100127

REACTIONS (1)
  - WHITE BLOOD CELL COUNT INCREASED [None]
